FAERS Safety Report 25869734 (Version 1)
Quarter: 2025Q4

REPORT INFORMATION
  Report Type: Spontaneous
  Country: GB (occurrence: GB)
  Receive Date: 20251001
  Receipt Date: 20251001
  Transmission Date: 20260117
  Serious: Yes (Hospitalization, Other)
  Sender: ASTELLAS
  Company Number: None

PATIENT
  Age: 83 Year
  Sex: Male
  Weight: 126 kg

DRUGS (2)
  1. TAMSULOSIN [Interacting]
     Active Substance: TAMSULOSIN
     Indication: Prostatic hypoplasia
     Route: 050
     Dates: start: 20060504
  2. MIRABEGRON [Interacting]
     Active Substance: MIRABEGRON
     Indication: Bladder disorder
     Dosage: 50 MG
     Route: 065
     Dates: start: 20250315, end: 20250815

REACTIONS (3)
  - Epistaxis [Recovering/Resolving]
  - Drug interaction [Unknown]
  - Medication error [Unknown]

NARRATIVE: CASE EVENT DATE: 20250415
